FAERS Safety Report 17669063 (Version 3)
Quarter: 2020Q2

REPORT INFORMATION
  Report Type: Spontaneous
  Country: US (occurrence: US)
  Receive Date: 20200415
  Receipt Date: 20200423
  Transmission Date: 20200713
  Serious: Yes (Hospitalization, Other)
  Sender: FDA-Public Use
  Company Number: US-GLAXOSMITHKLINE-US2020062901

PATIENT
  Age: 48 Year
  Sex: Male

DRUGS (2)
  1. ALBUTEROL SULFATE. [Suspect]
     Active Substance: ALBUTEROL SULFATE
     Indication: PRODUCT USED FOR UNKNOWN INDICATION
     Dosage: UNK
     Route: 065
  2. TRELEGY ELLIPTA [Suspect]
     Active Substance: FLUTICASONE FUROATE\UMECLIDINIUM BROMIDE\VILANTEROL TRIFENATATE
     Indication: CHRONIC OBSTRUCTIVE PULMONARY DISEASE
     Dosage: UNK
     Route: 065
     Dates: start: 20200408

REACTIONS (16)
  - Pneumonia [Unknown]
  - Feeling jittery [Unknown]
  - Drug ineffective [Unknown]
  - Cough [Unknown]
  - Pain in extremity [Unknown]
  - Cardiac disorder [Unknown]
  - Wheezing [Unknown]
  - Bradyphrenia [Unknown]
  - Asthenia [Unknown]
  - Eye pain [Unknown]
  - Dyspnoea [Unknown]
  - Fatigue [Unknown]
  - Visual impairment [Unknown]
  - Dizziness [Unknown]
  - Overdose [Unknown]
  - Somnolence [Unknown]

NARRATIVE: CASE EVENT DATE: 20200416
